FAERS Safety Report 17845610 (Version 1)
Quarter: 2020Q2

REPORT INFORMATION
  Report Type: Spontaneous
  Country: US (occurrence: US)
  Receive Date: 20200530
  Receipt Date: 20200530
  Transmission Date: 20200714
  Serious: Yes (Hospitalization)
  Sender: FDA-Public Use
  Company Number: None

PATIENT
  Sex: Male
  Weight: 116.8 kg

DRUGS (3)
  1. VELCADE [Suspect]
     Active Substance: BORTEZOMIB
     Dates: end: 20160115
  2. LENALIDOMIDE [Suspect]
     Active Substance: LENALIDOMIDE
     Dates: end: 20160117
  3. DEXAMETHASONE. [Suspect]
     Active Substance: DEXAMETHASONE
     Dates: end: 20160112

REACTIONS (8)
  - Atrial fibrillation [None]
  - Fluid retention [None]
  - Blood pressure systolic decreased [None]
  - Dyspnoea [None]
  - Oedema [None]
  - Therapy cessation [None]
  - Discomfort [None]
  - Chest pain [None]

NARRATIVE: CASE EVENT DATE: 20160118
